FAERS Safety Report 17207454 (Version 1)
Quarter: 2019Q4

REPORT INFORMATION
  Report Type: Spontaneous
  Country: US (occurrence: US)
  Receive Date: 20191227
  Receipt Date: 20191227
  Transmission Date: 20200122
  Serious: Yes (Other)
  Sender: FDA-Public Use
  Company Number: US-PFIZER INC-2019552622

PATIENT
  Age: 62 Year
  Sex: Female
  Weight: 86.18 kg

DRUGS (1)
  1. XELJANZ XR [Suspect]
     Active Substance: TOFACITINIB CITRATE
     Indication: RHEUMATOID ARTHRITIS
     Dosage: 11 MG, DAILY
     Route: 048

REACTIONS (9)
  - Pneumonia [Unknown]
  - Nephrolithiasis [Unknown]
  - Sinusitis [Recovering/Resolving]
  - Liver function test abnormal [Unknown]
  - Blood calcium abnormal [Unknown]
  - Thyroid mass [Unknown]
  - Immune system disorder [Unknown]
  - Arthropathy [Unknown]
  - Parathyroid disorder [Unknown]

NARRATIVE: CASE EVENT DATE: 201910
